FAERS Safety Report 4816708-X (Version None)
Quarter: 2005Q4

REPORT INFORMATION
  Report Type: 
  Country: None (occurrence: None)
  Receive Date: 20051101
  Receipt Date: 20051031
  Transmission Date: 20060501
  Serious: Yes (Other)
  Sender: FDA-Public Use
  Company Number: US-GLAXOSMITHKLINE-A0580236A

PATIENT
  Age: 47 Year
  Sex: Female

DRUGS (1)
  1. COMMIT [Suspect]

REACTIONS (1)
  - DRUG ABUSER [None]
